FAERS Safety Report 26010638 (Version 1)
Quarter: 2025Q4

REPORT INFORMATION
  Report Type: Spontaneous
  Country: US (occurrence: US)
  Receive Date: 20251107
  Receipt Date: 20251107
  Transmission Date: 20260118
  Serious: Yes (Death, Other)
  Sender: RANBAXY
  Company Number: US-SUN PHARMACEUTICAL INDUSTRIES LTD-2025R1-534691

PATIENT
  Age: 65 Year
  Sex: Male

DRUGS (4)
  1. DEXAMETHASONE [Suspect]
     Active Substance: DEXAMETHASONE
     Indication: Choriomeningitis lymphocytic
     Dosage: UNK
     Route: 065
  2. METHYLPREDNISOLONE [Suspect]
     Active Substance: METHYLPREDNISOLONE
     Indication: Choriomeningitis lymphocytic
     Dosage: UNK
     Route: 065
  3. ECULIZUMAB [Suspect]
     Active Substance: ECULIZUMAB
     Indication: Choriomeningitis lymphocytic
     Dosage: UNK
     Route: 065
  4. DAPTOMYCIN [Suspect]
     Active Substance: DAPTOMYCIN
     Indication: Choriomeningitis lymphocytic
     Dosage: UNK
     Route: 042

REACTIONS (3)
  - Disease progression [Fatal]
  - Hypotension [Unknown]
  - Depressed level of consciousness [Unknown]
